FAERS Safety Report 4890641-X (Version None)
Quarter: 2006Q1

REPORT INFORMATION
  Report Type: 
  Country: None (occurrence: None)
  Receive Date: 20060125
  Receipt Date: 20050223
  Transmission Date: 20060701
  Serious: No
  Sender: FDA-Public Use
  Company Number: US-BRISTOL-MYERS SQUIBB COMPANY-12874343

PATIENT
  Age: 68 Year
  Sex: Male

DRUGS (1)
  1. CARDIOLITE [Suspect]
     Dates: start: 20050210, end: 20050210

REACTIONS (2)
  - PRURITUS [None]
  - URTICARIA [None]
